FAERS Safety Report 8007073-8 (Version None)
Quarter: 2011Q4

REPORT INFORMATION
  Report Type: 
  Country: None (occurrence: None)
  Receive Date: 20111222
  Receipt Date: 20111222
  Transmission Date: 20120403
  Serious: Yes (Hospitalization)
  Sender: FDA-Public Use
  Company Number: None

PATIENT
  Sex: Male
  Weight: 47.6 kg

DRUGS (6)
  1. PERCOCET [Concomitant]
  2. FLUOROURACIL [Suspect]
     Dosage: 4424 MG
  3. LEUCOVORIN CALCIUM [Suspect]
     Dosage: 632 MG
  4. PRILOSEC [Concomitant]
  5. BEVACIZUMAB (RHUMAB VEGF) [Suspect]
     Dosage: 262.5 MG
  6. ZOFRAN [Concomitant]

REACTIONS (12)
  - ABDOMINAL PAIN [None]
  - HAEMOGLOBIN DECREASED [None]
  - BACTERAEMIA [None]
  - BLOOD ALKALINE PHOSPHATASE INCREASED [None]
  - JAUNDICE [None]
  - HYPOKALAEMIA [None]
  - WHITE BLOOD CELL COUNT DECREASED [None]
  - HYDRONEPHROSIS [None]
  - ALANINE AMINOTRANSFERASE INCREASED [None]
  - HAEMANGIOMA OF LIVER [None]
  - ASPARTATE AMINOTRANSFERASE INCREASED [None]
  - HYPOCALCAEMIA [None]
